FAERS Safety Report 6609115-0 (Version None)
Quarter: 2010Q1

REPORT INFORMATION
  Report Type: 
  Country: None (occurrence: None)
  Receive Date: 20100301
  Receipt Date: 20100225
  Transmission Date: 20100710
  Serious: Yes (Disabling, Other)
  Sender: FDA-Public Use
  Company Number: GB-MERCK-1002GBR00105

PATIENT
  Age: 5 Year
  Sex: Female

DRUGS (3)
  1. SINGULAIR [Suspect]
     Indication: ASTHMA
     Route: 048
     Dates: start: 20091105, end: 20100209
  2. CLENIL MODULITE [Concomitant]
     Route: 055
  3. ALBUTEROL [Concomitant]
     Route: 055
     Dates: start: 20091103

REACTIONS (3)
  - INSOMNIA [None]
  - MYDRIASIS [None]
  - PSYCHOMOTOR HYPERACTIVITY [None]
